FAERS Safety Report 23743323 (Version 1)
Quarter: 2024Q2

REPORT INFORMATION
  Report Type: Spontaneous
  Country: NL (occurrence: None)
  Receive Date: 20240413
  Receipt Date: 20240413
  Transmission Date: 20240716
  Serious: Yes (Hospitalization)
  Sender: FDA-Public Use
  Company Number: None

PATIENT
  Age: 30 Year
  Sex: Female
  Weight: 49.5 kg

DRUGS (3)
  1. CIPROFLOXACIN [Suspect]
     Active Substance: CIPROFLOXACIN
     Indication: Urinary tract infection
     Dosage: 1 TABLET EVERY 12 HOURS ORAL?
     Route: 048
     Dates: start: 20240401, end: 20240402
  2. Hydrolized collagen [Concomitant]
  3. Pre-natal multivitamin [Concomitant]

REACTIONS (18)
  - Tendonitis [None]
  - Fatigue [None]
  - Arthralgia [None]
  - Joint swelling [None]
  - Muscle disorder [None]
  - Neuropathy peripheral [None]
  - Paraesthesia [None]
  - Hypoaesthesia [None]
  - Vulvovaginal pain [None]
  - Peripheral vascular disorder [None]
  - Nonspecific reaction [None]
  - Erythema [None]
  - Sleep disorder [None]
  - Myalgia [None]
  - Pain in extremity [None]
  - Vulvovaginal burning sensation [None]
  - Muscle strain [None]
  - Rash macular [None]

NARRATIVE: CASE EVENT DATE: 20240401
